FAERS Safety Report 9057887 (Version 2)
Quarter: 2013Q2

REPORT INFORMATION
  Report Type: Spontaneous
  Country: DE (occurrence: DE)
  Receive Date: 20130210
  Receipt Date: 20130611
  Transmission Date: 20140414
  Serious: Yes (Hospitalization, Other)
  Sender: FDA-Public Use
  Company Number: DE-AMGEN-DEUSP2013008479

PATIENT
  Age: 47 Year
  Sex: Male
  Weight: 73 kg

DRUGS (5)
  1. ENBREL [Suspect]
     Indication: RHEUMATOID ARTHRITIS
     Dosage: 50 MG, WEEKLY
     Route: 065
     Dates: start: 201007, end: 20120601
  2. MTX                                /00113802/ [Concomitant]
     Dosage: 15 MG, UNK
     Route: 058
     Dates: start: 200708
  3. FALITHROM [Concomitant]
     Dosage: UNK
  4. ARCOXIA [Concomitant]
     Dosage: UNK
  5. PREDNISOLON                        /00016201/ [Concomitant]
     Indication: RHEUMATOID ARTHRITIS
     Dosage: 7.5 MG, UNK
     Route: 048
     Dates: start: 200611

REACTIONS (4)
  - Arrhythmia [Not Recovered/Not Resolved]
  - Congestive cardiomyopathy [Not Recovered/Not Resolved]
  - Cardiac failure [Not Recovered/Not Resolved]
  - Chest pain [Unknown]
